FAERS Safety Report 8589521-8 (Version None)
Quarter: 2012Q3

REPORT INFORMATION
  Report Type: 
  Country: None (occurrence: None)
  Receive Date: 20120813
  Receipt Date: 20120807
  Transmission Date: 20120928
  Serious: Yes (Life-Threatening, Hospitalization)
  Sender: FDA-Public Use
  Company Number: LT-ROCHE-1035559

PATIENT
  Age: 50 Year
  Sex: Male
  Weight: 70 kg

DRUGS (3)
  1. PEGASYS [Suspect]
     Indication: HEPATITIS C
     Route: 023
     Dates: start: 20110217, end: 20110929
  2. COPEGUS [Suspect]
     Indication: HEPATITIS C
     Dosage: FILM-COATED TABLET
     Route: 048
     Dates: start: 20110217, end: 20110929
  3. CITALOPRAM [Concomitant]
     Indication: MOOD ALTERED
     Route: 048

REACTIONS (1)
  - BRONCHIAL CARCINOMA [None]
